FAERS Safety Report 19353323 (Version 1)
Quarter: 2021Q2

REPORT INFORMATION
  Report Type: Spontaneous
  Country: US (occurrence: US)
  Receive Date: 20210531
  Receipt Date: 20210531
  Transmission Date: 20210717
  Serious: Yes (Other)
  Sender: FDA-Public Use
  Company Number: US-PURDUE-USA-2003-0004030

PATIENT
  Age: 48 Year
  Sex: Male
  Weight: 74.83 kg

DRUGS (2)
  1. OXYCONTIN [Suspect]
     Active Substance: OXYCODONE HYDROCHLORIDE
     Indication: PRODUCT USED FOR UNKNOWN INDICATION
     Dosage: UNK, UNK
     Route: 048
  2. UNKNOWN [Concomitant]
     Active Substance: UNSPECIFIED INGREDIENT
     Indication: PRODUCT USED FOR UNKNOWN INDICATION
     Dosage: UNK, UNK

REACTIONS (8)
  - Respiratory rate decreased [None]
  - Somnolence [Recovered/Resolved]
  - Depressed level of consciousness [None]
  - Hyperhidrosis [None]
  - Drug dependence [Unknown]
  - Overdose [Recovered/Resolved]
  - Heart rate decreased [None]
  - Abdominal discomfort [None]

NARRATIVE: CASE EVENT DATE: 19971225
